FAERS Safety Report 7717610-6 (Version None)
Quarter: 2011Q3

REPORT INFORMATION
  Report Type: 
  Country: None (occurrence: None)
  Receive Date: 20110830
  Receipt Date: 20110823
  Transmission Date: 20111222
  Serious: Yes (Death)
  Sender: FDA-Public Use
  Company Number: JP-BRISTOL-MYERS SQUIBB COMPANY-15974272

PATIENT
  Age: 36 Year
  Sex: Female
  Weight: 56 kg

DRUGS (4)
  1. VINBLASTINE SULFATE [Suspect]
     Indication: CERVIX CARCINOMA
     Route: 065
  2. BLEOMYCIN SULFATE [Suspect]
     Indication: CERVIX CARCINOMA
     Dosage: TOTAL DOSE-210MG
     Route: 065
  3. MITOMYCIN [Suspect]
     Indication: CERVIX CARCINOMA
     Route: 065
  4. CISPLATIN [Suspect]
     Indication: CERVIX CARCINOMA
     Route: 065

REACTIONS (1)
  - PULMONARY VENO-OCCLUSIVE DISEASE [None]
